FAERS Safety Report 9257726 (Version 1)
Quarter: 2013Q1

REPORT INFORMATION
  Report Type: Spontaneous
  Country: US (occurrence: None)
  Receive Date: 20121212
  Receipt Date: 20121212
  Transmission Date: 20140127
  Serious: No
  Sender: FDA-Public Use
  Company Number: 1208USA012233

PATIENT
  Sex: Female

DRUGS (3)
  1. PEGINTRON [Suspect]
     Indication: HEPATITIS C VIRUS TEST POSITIVE
     Dosage: UNK
     Dates: start: 20111218
  2. REBETOL (RIBAVIRIN) CAPSULE [Suspect]
     Indication: HEPATITIS C VIRUS TEST POSITIVE
     Dates: start: 20111219
  3. VICTRELIS (BOCEPREVIR) CAPSULE [Suspect]
     Indication: HEPATITIS C VIRUS TEST POSITIVE
     Dosage: UNK
     Dates: start: 20120116

REACTIONS (3)
  - Headache [None]
  - Nasopharyngitis [None]
  - Influenza like illness [None]
